FAERS Safety Report 14703125 (Version 1)
Quarter: 2018Q2

REPORT INFORMATION
  Report Type: Report from Study
  Country: US (occurrence: US)
  Receive Date: 20180402
  Receipt Date: 20180402
  Transmission Date: 20180711
  Serious: No
  Sender: FDA-Public Use
  Company Number: PHEH2018US012124

PATIENT
  Sex: Female

DRUGS (2)
  1. COCONUT OIL [Concomitant]
     Active Substance: COCONUT OIL
     Indication: PRODUCT USED FOR UNKNOWN INDICATION
     Route: 065
  2. AFINITOR [Suspect]
     Active Substance: EVEROLIMUS
     Indication: PRODUCT USED FOR UNKNOWN INDICATION
     Dosage: 10 MG, UNK
     Route: 048

REACTIONS (9)
  - Eyelid disorder [Unknown]
  - Skin disorder [Unknown]
  - Rash [Unknown]
  - Back pain [Unknown]
  - Dry skin [Unknown]
  - Skin wrinkling [Unknown]
  - Pain [Unknown]
  - Burning sensation [Unknown]
  - Lip dry [Unknown]
